FAERS Safety Report 6875821-6 (Version None)
Quarter: 2010Q3

REPORT INFORMATION
  Report Type: 
  Country: None (occurrence: None)
  Receive Date: 20100727
  Receipt Date: 20100714
  Transmission Date: 20110219
  Serious: Yes (Hospitalization)
  Sender: FDA-Public Use
  Company Number: BR-PFIZER INC-2010088251

PATIENT
  Sex: Male
  Weight: 64 kg

DRUGS (5)
  1. LONITEN [Suspect]
     Indication: BLOOD PRESSURE INCREASED
     Dosage: 3 TABLETS DAILY, UNKNOWN FREQUENCY
     Route: 048
     Dates: start: 20091201
  2. FOLIC ACID [Concomitant]
     Dosage: UNK
     Dates: start: 20060101
  3. OMEPRAZOLE [Concomitant]
     Dosage: UNK
     Dates: start: 20060101
  4. ATENSINA [Concomitant]
     Dosage: UNK
     Dates: start: 20060101
  5. NIFEDIPINE [Concomitant]
     Dosage: UNK
     Dates: start: 20100101

REACTIONS (2)
  - HYPERTENSIVE CRISIS [None]
  - RENAL FAILURE CHRONIC [None]
